FAERS Safety Report 16618597 (Version 7)
Quarter: 2021Q3

REPORT INFORMATION
  Report Type: Report from Study
  Country: KR (occurrence: KR)
  Receive Date: 20190723
  Receipt Date: 20210729
  Transmission Date: 20211014
  Serious: Yes (Death, Hospitalization)
  Sender: FDA-Public Use
  Company Number: KR-ROCHE-2271860

PATIENT
  Age: 47 Year
  Sex: Male
  Weight: 70.1 kg

DRUGS (27)
  1. NEXIUM [Concomitant]
     Active Substance: ESOMEPRAZOLE MAGNESIUM
     Indication: PROPHYLAXIS
     Route: 048
     Dates: start: 20190116
  2. MAGNESIUM SULFATE. [Concomitant]
     Active Substance: MAGNESIUM SULFATE
     Indication: PROPHYLAXIS
     Dates: start: 20190201, end: 20190201
  3. DUPHALAC EASY [Concomitant]
     Active Substance: LACTULOSE
     Dates: start: 20190223
  4. ATEZOLIZUMAB. [Suspect]
     Active Substance: ATEZOLIZUMAB
     Indication: PANCREATIC CARCINOMA METASTATIC
     Dosage: THIS WAS MOST RECENT MOST FOR 1ST EPI OF TOTAL BILIRUBIN INCREASED?DATE OF MOST RECENT DOSE OF ATEZO
     Route: 042
     Dates: start: 20190129
  5. TYLENOL [Concomitant]
     Active Substance: ACETAMINOPHEN
     Indication: PYREXIA
     Route: 048
     Dates: start: 20190129, end: 20190226
  6. PENIRAMIN [Concomitant]
     Dates: start: 20190129, end: 20190220
  7. PENIRAMIN [Concomitant]
     Indication: NAUSEA
     Dates: start: 20190220, end: 20190220
  8. ZEMIMET [Concomitant]
     Indication: DIABETES MELLITUS
     Dosage: 25/500 MG
     Dates: start: 2017
  9. ULTRACET SEMI [Concomitant]
     Active Substance: ACETAMINOPHEN\TRAMADOL HYDROCHLORIDE
     Indication: TUMOUR PAIN
     Dates: start: 20181219, end: 20190312
  10. NORZYME [Concomitant]
     Indication: PROPHYLAXIS
     Dates: start: 20180710
  11. PHAZYME 95 [Concomitant]
     Dates: start: 20190221, end: 20190225
  12. LIPITOR [Concomitant]
     Active Substance: ATORVASTATIN CALCIUM
     Indication: HYPERLIPIDAEMIA
     Dates: start: 20190201
  13. NAB?PACLITAXEL [Concomitant]
     Active Substance: PACLITAXEL
     Indication: NEOPLASM MALIGNANT
     Dates: start: 20180717, end: 20190102
  14. RO6874281 (FAP IL2V MAB) [Suspect]
     Active Substance: SIMLUKAFUSP ALFA
     Indication: PANCREATIC CARCINOMA METASTATIC
     Dosage: THIS WAS ALSO MOST RECENT MOST FOR 1ST EPI OF TOTAL BILIRUBIN INCREASED?DATE OF MOST RECENT DOSE OF
     Route: 042
     Dates: start: 20190129
  15. GASTER (SOUTH KOREA) [Concomitant]
     Indication: ABDOMINAL DISCOMFORT
     Dates: start: 20190129, end: 20190220
  16. PHAZYME 95 [Concomitant]
     Indication: ABDOMINAL DISCOMFORT
     Dates: start: 20190130, end: 20190130
  17. MACPERAN [Concomitant]
     Active Substance: METOCLOPRAMIDE HYDROCHLORIDE
     Indication: ABDOMINAL DISCOMFORT
     Dates: start: 20190221, end: 20190225
  18. GASTER (SOUTH KOREA) [Concomitant]
     Dates: start: 20190131, end: 20190131
  19. TARGIN [Concomitant]
     Active Substance: NALOXONE HYDROCHLORIDE\OXYCODONE HYDROCHLORIDE
     Indication: TUMOUR PAIN
     Dates: start: 20190312
  20. DEXTROSE. [Concomitant]
     Active Substance: DEXTROSE
     Dates: start: 20190117, end: 20190117
  21. ULCERMIN SUSPENSION [Concomitant]
     Indication: ABDOMINAL DISCOMFORT
     Dates: start: 20190207
  22. GEMCITABINE. [Concomitant]
     Active Substance: GEMCITABINE
     Indication: NEOPLASM MALIGNANT
     Dates: start: 20180717, end: 20190102
  23. ROVELITO [Concomitant]
     Indication: HYPERTENSION
     Dosage: 300/20 MG
     Dates: start: 2017, end: 20190131
  24. DIABEX [Concomitant]
     Active Substance: METFORMIN HYDROCHLORIDE
     Indication: DIABETES MELLITUS
     Dates: start: 2017
  25. MACPERAN [Concomitant]
     Active Substance: METOCLOPRAMIDE HYDROCHLORIDE
     Indication: NAUSEA
     Dates: start: 20190220, end: 20190220
  26. NORMAL SALINE [Concomitant]
     Active Substance: SODIUM CHLORIDE
     Dates: start: 20190129, end: 20190220
  27. NAXEN?F [Concomitant]
     Indication: PYREXIA
     Route: 048
     Dates: start: 20190129, end: 20190226

REACTIONS (1)
  - Drug-induced liver injury [Recovered/Resolved]

NARRATIVE: CASE EVENT DATE: 20190130
